FAERS Safety Report 8348149-5 (Version None)
Quarter: 2012Q2

REPORT INFORMATION
  Report Type: 
  Country: None (occurrence: None)
  Receive Date: 20120509
  Receipt Date: 20120504
  Transmission Date: 20120825
  Serious: Yes (Disabling, Other)
  Sender: FDA-Public Use
  Company Number: US-PFIZER INC-2011067364

PATIENT
  Sex: Male
  Weight: 102 kg

DRUGS (42)
  1. LUVOX [Suspect]
     Dosage: UNK
  2. ACETYLSALICYLIC ACID [Concomitant]
     Dosage: 81 MG, 2X/DAY
  3. DIGOXIN [Concomitant]
     Dosage: 0.125MG ONE PILL ONCE A DAY AND TWO PILLS ONCE A DAY ALTERNATIVELY
  4. DIAZEPAM [Concomitant]
     Dosage: 5 MG, UNK
  5. CODEINE [Suspect]
     Dosage: UNK
  6. PLAVIX [Suspect]
     Dosage: UNK
  7. ALLOPURINOL [Concomitant]
     Dosage: 300 MG, 1X/DAY
  8. CLOZAPINE [Concomitant]
     Dosage: UNK
  9. TRAMADOL HCL [Suspect]
     Dosage: UNK
  10. FUROSEMIDE [Concomitant]
     Indication: DIURETIC THERAPY
     Dosage: UNK
  11. LUMIGAN [Concomitant]
     Indication: ABNORMAL SENSATION IN EYE
     Dosage: 1 GTT, 1X/DAY
  12. ALPRAZOLAM [Suspect]
     Dosage: UNK
  13. ZOCOR [Suspect]
     Dosage: UNK
  14. VICODIN [Concomitant]
     Dosage: UNK
  15. BILBERRY [Concomitant]
     Dosage: 1000 MG, UNK
  16. MOTRIN [Suspect]
     Dosage: UNK
  17. PROSCAR [Suspect]
     Dosage: UNK
  18. CYCLOSPORINE [Suspect]
     Dosage: UNK
  19. COREG [Suspect]
     Indication: CARDIAC DISORDER
     Dosage: UNK
  20. FISH OIL [Concomitant]
     Dosage: UNK
  21. LIPITOR [Suspect]
     Dosage: UNK
  22. VIAGRA [Suspect]
     Dosage: UNK
  23. TOPROL-XL [Suspect]
     Dosage: UNK
  24. REGLAN [Suspect]
     Dosage: UNK
  25. LOTRIMIN [Suspect]
     Dosage: UNK
  26. TIMOLOL [Concomitant]
     Indication: ABNORMAL SENSATION IN EYE
     Dosage: 1 GTT, 4X/DAY
  27. METFORMIN HCL [Suspect]
     Indication: DIABETES MELLITUS
     Dosage: 500 MG, UNK
     Dates: start: 20101018
  28. ZETIA [Suspect]
     Dosage: UNK
  29. PROZAC [Suspect]
     Dosage: UNK
  30. ACETYLSALICYLIC ACID [Concomitant]
     Indication: CARDIAC DISORDER
     Dosage: 50 MG, UNK
  31. LOSARTAN [Concomitant]
     Indication: CARDIAC DISORDER
     Dosage: UNK
  32. PRAVASTATIN [Concomitant]
     Dosage: 40 MG, 1X/DAY
  33. XALATAN [Suspect]
     Dosage: UNK
     Route: 047
  34. IBUPROFEN (ADVIL) [Suspect]
     Indication: BACK PAIN
     Dosage: 200 MG, AS NEEDED
     Dates: end: 20110301
  35. METOPROLOL TARTRATE [Suspect]
     Indication: HYPERTENSION
     Dosage: 25 MG, 2X/DAY
     Dates: start: 20090101
  36. GLUCOPHAGE [Suspect]
     Dosage: UNK
  37. OXYCODONE [Concomitant]
     Indication: BACK PAIN
     Dosage: UNK
  38. LANTUS [Concomitant]
     Indication: DIABETES MELLITUS
     Dosage: 12 IU, 1X/DAY
  39. POTASSIUM CHLORIDE [Concomitant]
     Dosage: 20 MG, UNK
  40. PILOCARPINE [Concomitant]
     Indication: INTRAOCULAR PRESSURE INCREASED
     Dosage: UNK
  41. THERA TEARS [Concomitant]
     Dosage: UNK
  42. FOLIC ACID [Concomitant]
     Dosage: UNK

REACTIONS (14)
  - ABASIA [None]
  - SKIN IRRITATION [None]
  - HIP ARTHROPLASTY [None]
  - VOMITING [None]
  - DYSPNOEA [None]
  - BLOOD GLUCOSE INCREASED [None]
  - MYALGIA [None]
  - ASTHENIA [None]
  - BACK PAIN [None]
  - FATIGUE [None]
  - CONSTIPATION [None]
  - DRUG HYPERSENSITIVITY [None]
  - NAUSEA [None]
  - SLEEP DISORDER [None]
